FAERS Safety Report 4313829-5 (Version None)
Quarter: 2004Q1

REPORT INFORMATION
  Report Type: 
  Country: None (occurrence: None)
  Receive Date: 20040304
  Receipt Date: 20040203
  Transmission Date: 20041129
  Serious: Yes (Other)
  Sender: FDA-Public Use
  Company Number: 2004007539

PATIENT
  Sex: 0

DRUGS (1)
  1. GEODON [Suspect]
     Indication: ILL-DEFINED DISORDER
     Dosage: UNK (UNKNOWN), UNKNOWN
     Route: 065

REACTIONS (1)
  - OCULOGYRATION [None]
